FAERS Safety Report 7305933-4 (Version None)
Quarter: 2011Q1

REPORT INFORMATION
  Report Type: 
  Country: None (occurrence: None)
  Receive Date: 20110222
  Receipt Date: 20110216
  Transmission Date: 20110831
  Serious: Yes (Hospitalization)
  Sender: FDA-Public Use
  Company Number: FR-US-EMD SERONO, INC.-7037038

PATIENT
  Age: 29 Year
  Sex: Female

DRUGS (5)
  1. GONADOTROPHINE CHORIONIQUE ENDO 5000 IU [Suspect]
     Indication: PRODUCT USED FOR UNKNOWN INDICATION
     Route: 058
  2. LAMICTAL [Concomitant]
     Indication: PRODUCT USED FOR UNKNOWN INDICATION
  3. PROGESTERONE [Concomitant]
     Indication: PRODUCT USED FOR UNKNOWN INDICATION
  4. DECAPEPTYL [Suspect]
     Indication: PRODUCT USED FOR UNKNOWN INDICATION
     Route: 058
  5. GONAL-F [Suspect]
     Indication: PRODUCT USED FOR UNKNOWN INDICATION
     Route: 058

REACTIONS (5)
  - ASCITES [None]
  - OVARIAN HYPERSTIMULATION SYNDROME [None]
  - HYPONATRAEMIA [None]
  - DEHYDRATION [None]
  - DECREASED APPETITE [None]
